FAERS Safety Report 21903669 (Version 13)
Quarter: 2025Q1

REPORT INFORMATION
  Report Type: Spontaneous
  Country: US (occurrence: US)
  Receive Date: 20230124
  Receipt Date: 20250123
  Transmission Date: 20250408
  Serious: Yes (Hospitalization, Other)
  Sender: PFIZER
  Company Number: US-PFIZER INC-PV202300012718

PATIENT
  Age: 72 Year
  Sex: Female

DRUGS (6)
  1. IBRANCE [Suspect]
     Active Substance: PALBOCICLIB
     Indication: Breast cancer female
     Dates: start: 202209
  2. IBRANCE [Suspect]
     Active Substance: PALBOCICLIB
     Route: 048
  3. IBRANCE [Suspect]
     Active Substance: PALBOCICLIB
     Route: 048
  4. IBRANCE [Suspect]
     Active Substance: PALBOCICLIB
     Route: 048
  5. IBRANCE [Suspect]
     Active Substance: PALBOCICLIB
     Route: 048
  6. FULVESTRANT [Concomitant]
     Active Substance: FULVESTRANT
     Dates: start: 202209

REACTIONS (3)
  - White blood cell count decreased [Not Recovered/Not Resolved]
  - Neutropenia [Unknown]
  - Dysphagia [Unknown]

NARRATIVE: CASE EVENT DATE: 20221202
